FAERS Safety Report 12953582 (Version 1)
Quarter: 2016Q4

REPORT INFORMATION
  Report Type: Spontaneous
  Country: US (occurrence: US)
  Receive Date: 20161117
  Receipt Date: 20161117
  Transmission Date: 20170207
  Serious: Yes (Hospitalization, Other)
  Sender: FDA-Public Use
  Company Number: US-ASTRAZENECA-2016SF21970

PATIENT
  Sex: Male

DRUGS (2)
  1. DALIRESP [Suspect]
     Active Substance: ROFLUMILAST
     Indication: EMPHYSEMA
     Route: 048
  2. OXYGEN. [Concomitant]
     Active Substance: OXYGEN
     Dosage: 2 LITERS, 24 HOURS A DAY

REACTIONS (6)
  - Loss of consciousness [Unknown]
  - Drug dose omission [Unknown]
  - Product use issue [Unknown]
  - Cough [Unknown]
  - Off label use [Unknown]
  - Dyspnoea [Unknown]
